FAERS Safety Report 7023703-1 (Version None)
Quarter: 2010Q4

REPORT INFORMATION
  Report Type: 
  Country: None (occurrence: None)
  Receive Date: 20101001
  Receipt Date: 20100923
  Transmission Date: 20110411
  Serious: Yes (Other)
  Sender: FDA-Public Use
  Company Number: NL-PAR PHARMACEUTICAL, INC-2010SCPR002091

PATIENT

DRUGS (3)
  1. CABERGOLINE [Suspect]
     Indication: PROLACTINOMA
     Dosage: 0.5 MG, TWICE A WEEK
     Route: 065
  2. CABERGOLINE [Suspect]
     Dosage: 0.125 MG, TWICE A WEEK
  3. CABERGOLINE [Suspect]
     Dosage: 0.5 MG, TWICE A WEEK

REACTIONS (4)
  - CEREBROSPINAL FLUID RHINORRHOEA [None]
  - HEADACHE [None]
  - INTRACRANIAL HYPOTENSION [None]
  - NAUSEA [None]
